FAERS Safety Report 5099243-6 (Version None)
Quarter: 2006Q3

REPORT INFORMATION
  Report Type: 
  Country: None (occurrence: None)
  Receive Date: 20060731
  Receipt Date: 20050630
  Transmission Date: 20061208
  Serious: Yes (Other)
  Sender: FDA-Public Use
  Company Number: 215756

PATIENT
  Age: 40 Year
  Sex: Female

DRUGS (3)
  1. HERCEPTIN [Suspect]
     Indication: DRUG USE FOR UNKNOWN INDICATION
  2. ZOMETA [Concomitant]
  3. PROCRIT [Concomitant]

REACTIONS (1)
  - HYPERSENSITIVITY [None]
